FAERS Safety Report 9106898 (Version 1)
Quarter: 2013Q1

REPORT INFORMATION
  Report Type: Spontaneous
  Country: US (occurrence: US)
  Receive Date: 20130221
  Receipt Date: 20130221
  Transmission Date: 20140127
  Serious: No
  Sender: FDA-Public Use
  Company Number: US-BAYER-2013-015472

PATIENT
  Age: 14 Year
  Sex: Female
  Weight: 77.1 kg

DRUGS (1)
  1. ALEVE SMOOTH GELS [Suspect]
     Route: 048

REACTIONS (1)
  - Overdose [None]
